FAERS Safety Report 8095049-4 (Version None)
Quarter: 2012Q1

REPORT INFORMATION
  Report Type: 
  Country: None (occurrence: None)
  Receive Date: 20120131
  Receipt Date: 20120131
  Transmission Date: 20120608
  Serious: No
  Sender: FDA-Public Use
  Company Number: None

PATIENT
  Age: 56 Year
  Sex: Female
  Weight: 62.142 kg

DRUGS (1)
  1. VENLAFAXINE HCL EXTENDED-RELEASE [Suspect]
     Indication: DEPRESSION
     Dosage: 150 MG
     Dates: start: 20120109, end: 20120130

REACTIONS (5)
  - ANXIETY [None]
  - DEPRESSION [None]
  - CONSTIPATION [None]
  - FATIGUE [None]
  - PRODUCT SUBSTITUTION ISSUE [None]
